FAERS Safety Report 7296142 (Version 2)
Quarter: 2018Q4

REPORT INFORMATION
  Report Type: Spontaneous
  Country: FR (occurrence: FR)
  Receive Date: 20100226
  Receipt Date: 20181022
  Transmission Date: 20190205
  Serious: Yes (Death, Hospitalization)
  Sender: FDA-Public Use
  Company Number: FR-PFIZER INC-2010019387

PATIENT
  Age: 59 Year
  Sex: Male
  Weight: 57 kg

DRUGS (5)
  1. SUTENT [Suspect]
     Active Substance: SUNITINIB MALATE
     Dosage: UNK UNK, CYCLIC (9TH CYCLE)
     Route: 048
     Dates: start: 20100104, end: 20100127
  2. EUTHYRAL [Concomitant]
     Active Substance: LEVOTHYROXINE SODIUM\LIOTHYRONINE SODIUM
     Indication: PAPILLARY THYROID CANCER
     Dosage: 1 DF, 1X/DAY
     Route: 048
  3. SUTENT [Suspect]
     Active Substance: SUNITINIB MALATE
     Indication: PAPILLARY THYROID CANCER
     Dosage: UNK UNK, CYCLIC
     Route: 048
     Dates: start: 200812
  4. LEVOTHYROX [Concomitant]
     Active Substance: LEVOTHYROXINE
     Indication: PAPILLARY THYROID CANCER
     Dosage: 50 UG, 1X/DAY
     Route: 048
  5. SUTENT [Suspect]
     Active Substance: SUNITINIB MALATE
     Dosage: UNK UNK, CYCLIC (7TH CYCLE)
     Route: 048
     Dates: end: 20091104

REACTIONS (3)
  - Hepatitis fulminant [Fatal]
  - Product use in unapproved indication [Unknown]
  - Thrombocytopenia [Fatal]

NARRATIVE: CASE EVENT DATE: 20100104
